FAERS Safety Report 25976166 (Version 2)
Quarter: 2025Q4

REPORT INFORMATION
  Report Type: Report from Study
  Country: US (occurrence: US)
  Receive Date: 20251029
  Receipt Date: 20251112
  Transmission Date: 20260117
  Serious: Yes (Other)
  Sender: MALLINCKRODT
  Company Number: US-MALLINCKRODT-MNK202506521

PATIENT
  Age: 59 Year
  Sex: Female
  Weight: 114 kg

DRUGS (1)
  1. CORTICOTROPIN [Suspect]
     Active Substance: CORTICOTROPIN
     Indication: Systemic lupus erythematosus
     Dosage: 80 UNITS
     Dates: start: 20250915

REACTIONS (11)
  - Systemic lupus erythematosus [Not Recovered/Not Resolved]
  - Near death experience [Unknown]
  - Fall [Unknown]
  - Rib fracture [Unknown]
  - Blood iron decreased [Unknown]
  - Dyspnoea [Unknown]
  - Stress [Unknown]
  - Central venous catheterisation [Unknown]
  - Gastrointestinal bacterial infection [Unknown]
  - Weight increased [Unknown]
  - Vomiting [Unknown]

NARRATIVE: CASE EVENT DATE: 20250101
